FAERS Safety Report 10190224 (Version 1)
Quarter: 2014Q2

REPORT INFORMATION
  Report Type: Spontaneous
  Country: IT (occurrence: IT)
  Receive Date: 20140522
  Receipt Date: 20140522
  Transmission Date: 20141212
  Serious: Yes (Hospitalization)
  Sender: FDA-Public Use
  Company Number: IT-MYLANLABS-2014S1011282

PATIENT
  Age: 34 Year
  Sex: Male

DRUGS (4)
  1. SERTRALINE [Suspect]
     Indication: PRODUCT USED FOR UNKNOWN INDICATION
     Dosage: 500 MG TOTAL
     Route: 048
     Dates: start: 20140416, end: 20140416
  2. LEXOTAN [Suspect]
     Indication: PRODUCT USED FOR UNKNOWN INDICATION
     Dosage: 60 ML TOTAL
     Route: 048
     Dates: start: 20140416, end: 20140416
  3. DEPAKIN [Suspect]
     Indication: PRODUCT USED FOR UNKNOWN INDICATION
     Dosage: 5 DF TOTAL
     Route: 048
     Dates: start: 20140416, end: 20140416
  4. SEROQUEL [Suspect]
     Indication: PRODUCT USED FOR UNKNOWN INDICATION
     Dosage: 5 DF TOTAL
     Route: 048
     Dates: start: 20140416, end: 20140416

REACTIONS (7)
  - Bradykinesia [Recovering/Resolving]
  - Hypotension [Recovering/Resolving]
  - Intentional self-injury [Recovering/Resolving]
  - Rhabdomyolysis [Recovering/Resolving]
  - Bradyphrenia [Recovering/Resolving]
  - Sopor [Recovering/Resolving]
  - Drug abuse [Recovering/Resolving]
